FAERS Safety Report 8334761-6 (Version None)
Quarter: 2012Q2

REPORT INFORMATION
  Report Type: 
  Country: None (occurrence: None)
  Receive Date: 20120503
  Receipt Date: 20120426
  Transmission Date: 20120825
  Serious: Yes (Hospitalization)
  Sender: FDA-Public Use
  Company Number: FI-B.I. PHARMACEUTICALS,INC./RIDGEFIELD-2012-SW-00343SF

PATIENT
  Age: 73 Year
  Sex: Male

DRUGS (4)
  1. BECLOMET [Concomitant]
  2. PRADAXA [Suspect]
     Indication: ATRIAL FIBRILLATION
     Dosage: 300 MG
     Dates: start: 20120318
  3. ROSUVASTATIN [Concomitant]
  4. BISOPROLOL FUMARATE [Concomitant]

REACTIONS (3)
  - DIZZINESS [None]
  - HEADACHE [None]
  - DIARRHOEA [None]
